FAERS Safety Report 8971723 (Version 1)
Quarter: 2012Q4

REPORT INFORMATION
  Report Type: 
  Country: US (occurrence: US)
  Receive Date: 20121217
  Receipt Date: 20121217
  Transmission Date: 20130627
  Serious: Yes (Other)
  Sender: FDA-Public Use
  Company Number: US-BAYER-2012-131400

PATIENT

DRUGS (2)
  1. ALEVE CAPLET/TABLET,MIDOL EXTENDED RELIEF CAPLET [Suspect]
     Indication: ACHE
  2. ANTIBIOTICS [Concomitant]

REACTIONS (4)
  - Feeling cold [None]
  - Mastitis [None]
  - Influenza like illness [None]
  - Intentional overdose [None]
